FAERS Safety Report 7040331 (Version 3)
Quarter: 2013Q3

REPORT INFORMATION
  Report Type: Spontaneous
  Country: FR (occurrence: FR)
  Receive Date: 20090702
  Receipt Date: 20130920
  Transmission Date: 20140515
  Serious: Yes (Hospitalization)
  Sender: FDA-Public Use
  Company Number: PHHY2009FR25280

PATIENT
  Age: 83 Year
  Sex: Female

DRUGS (9)
  1. ACLASTA [Suspect]
     Indication: OSTEOPOROSIS
     Dosage: UNK
     Route: 042
     Dates: start: 20090523
  2. NISIS [Suspect]
     Indication: HYPERTENSION
     Dosage: 160 MG, QD
     Dates: start: 20090503
  3. LASILIX [Suspect]
     Indication: OEDEMA PERIPHERAL
     Dosage: 20 MG, QD
     Dates: start: 20090518
  4. SERESTA [Suspect]
     Dosage: 0.5 DF, UNK
     Dates: start: 20090523
  5. DAFALGAN [Concomitant]
     Dosage: 4 G, UNK
  6. PRAVASTATINE [Concomitant]
     Dosage: 20 MG, UNK
  7. FRAGMIN [Concomitant]
     Dosage: 5000 IU, UNK
  8. KARDEGIC [Concomitant]
     Dosage: 160 MG, UNK
  9. DIURETICS [Concomitant]
     Indication: RENAL FAILURE CHRONIC

REACTIONS (6)
  - Nephropathy toxic [Recovered/Resolved with Sequelae]
  - Brain natriuretic peptide increased [Recovered/Resolved with Sequelae]
  - Renal failure acute [Recovering/Resolving]
  - Oedema [Recovered/Resolved with Sequelae]
  - Dyspnoea [Recovered/Resolved with Sequelae]
  - Hypocalcaemia [Recovering/Resolving]
